FAERS Safety Report 4639342-3 (Version None)
Quarter: 2005Q2

REPORT INFORMATION
  Report Type: 
  Country: None (occurrence: None)
  Receive Date: 20050418
  Receipt Date: 20050325
  Transmission Date: 20051028
  Serious: Yes (Hospitalization, Other)
  Sender: FDA-Public Use
  Company Number: 2005050994

PATIENT
  Age: 53 Year
  Sex: Female
  Weight: 81.6475 kg

DRUGS (1)
  1. BEXTRA [Suspect]
     Indication: SCIATICA
     Dosage: 10 MG (10 MG, 1 IN 1 D), ORAL
     Route: 048
     Dates: start: 20050101

REACTIONS (8)
  - ASTHENIA [None]
  - BLOOD PRESSURE ABNORMAL [None]
  - DIZZINESS [None]
  - DRUG INEFFECTIVE [None]
  - FEELING ABNORMAL [None]
  - HEART RATE INCREASED [None]
  - RASH MACULO-PAPULAR [None]
  - SOMNOLENCE [None]
